FAERS Safety Report 24800514 (Version 1)
Quarter: 2025Q1

REPORT INFORMATION
  Report Type: Spontaneous
  Country: US (occurrence: US)
  Receive Date: 20250102
  Receipt Date: 20250102
  Transmission Date: 20250409
  Serious: Yes (Hospitalization, Other)
  Sender: Haleon PLC
  Company Number: US-HALEON-2219699

PATIENT
  Sex: Female

DRUGS (3)
  1. IBUPROFEN [Suspect]
     Active Substance: IBUPROFEN
     Indication: Dysmenorrhoea
  2. IBUPROFEN [Suspect]
     Active Substance: IBUPROFEN
     Indication: Pain
  3. OXYCODONE [Concomitant]
     Active Substance: OXYCODONE
     Indication: Pain

REACTIONS (9)
  - Ocular icterus [Unknown]
  - Acute on chronic liver failure [Unknown]
  - Uterine leiomyoma [Unknown]
  - Liver disorder [Unknown]
  - Autoimmune hepatitis [Unknown]
  - Jaundice [Unknown]
  - Ascites [Unknown]
  - Portal tract inflammation [Unknown]
  - Skin reaction [Unknown]
